FAERS Safety Report 7363442-0 (Version None)
Quarter: 2011Q1

REPORT INFORMATION
  Report Type: 
  Country: None (occurrence: None)
  Receive Date: 20110321
  Receipt Date: 20110211
  Transmission Date: 20110831
  Serious: Yes (Hospitalization, Other)
  Sender: FDA-Public Use
  Company Number: DE-BAYER-201042024GPV

PATIENT
  Sex: Female

DRUGS (7)
  1. BISOPROLOL [Concomitant]
     Dosage: 5 MG (DAILY DOSE), ,
  2. PROVAS [Concomitant]
  3. SIMVASTATIN [Concomitant]
     Dosage: 40 MG (DAILY DOSE), ,
  4. SORAFENIB (RAF KINASE INHIBITOR) [Suspect]
     Indication: CAROTID ARTERY DISEASE
     Dates: start: 20100701, end: 20100930
  5. FELODIPINE [Concomitant]
     Dosage: 10 MG (DAILY DOSE), ,
  6. ALLOPURINOL [Concomitant]
     Dosage: 300 MG (DAILY DOSE), ,
  7. SUNITINIB [Suspect]
     Indication: CAROTID ARTERY DISEASE

REACTIONS (2)
  - CEREBRAL HAEMORRHAGE [None]
  - CAROTID ARTERY STENT INSERTION [None]
